FAERS Safety Report 19572386 (Version 2)
Quarter: 2021Q3

REPORT INFORMATION
  Report Type: Spontaneous
  Country: IT (occurrence: IT)
  Receive Date: 20210716
  Receipt Date: 20210824
  Transmission Date: 20211014
  Serious: Yes (Death, Other)
  Sender: FDA-Public Use
  Company Number: IT-BAYER-2021-171492

PATIENT
  Age: 65 Year
  Sex: Male

DRUGS (2)
  1. REGORAFENIB. [Suspect]
     Active Substance: REGORAFENIB
     Indication: ANAPLASTIC ASTROCYTOMA
     Dosage: UNK
     Dates: start: 20191220
  2. REGORAFENIB. [Suspect]
     Active Substance: REGORAFENIB
     Indication: ANAPLASTIC ASTROCYTOMA
     Dosage: UNK
     Dates: start: 20200120, end: 202002

REACTIONS (14)
  - Tumour pseudoprogression [None]
  - Glioblastoma [None]
  - Brain oedema [None]
  - Confusional state [None]
  - Metastases to central nervous system [Fatal]
  - Diarrhoea [None]
  - Aphasia [None]
  - Dysphagia [None]
  - Pyrexia [None]
  - Vasogenic cerebral oedema [None]
  - Mouth ulceration [None]
  - Off label use [None]
  - Anaplastic astrocytoma [Fatal]
  - Psychomotor skills impaired [None]

NARRATIVE: CASE EVENT DATE: 201912
